FAERS Safety Report 9445742 (Version 2)
Quarter: 2014Q1

REPORT INFORMATION
  Report Type: Report from Study
  Country: DE (occurrence: DE)
  Receive Date: 20130807
  Receipt Date: 20140207
  Transmission Date: 20141002
  Serious: Yes (Hospitalization)
  Sender: FDA-Public Use
  Company Number: DE-BRISTOL-MYERS SQUIBB COMPANY-19141373

PATIENT
  Age: 57 Year
  Sex: Female

DRUGS (15)
  1. ORENCIA [Suspect]
     Indication: RHEUMATOID ARTHRITIS
     Dosage: ABATACEPT 125 MG WAS RE-STARTED ON 24-APR-2013.?AUG-2011: 500MG?AUG-2012: 750MG
     Dates: start: 201108, end: 20120803
  2. PREDNISOLONE [Concomitant]
     Dates: start: 1999
  3. L-THYROXINE [Concomitant]
     Dosage: L-THYROXINE 50
     Dates: start: 201209
  4. CELEBREX [Concomitant]
     Dates: start: 201103
  5. PANTOZOL [Concomitant]
  6. TETRAZEPAM [Concomitant]
  7. VERAPAMIL [Concomitant]
     Dates: start: 201103
  8. VOLTAREN [Concomitant]
  9. NOVALGIN [Concomitant]
  10. TARGIN [Concomitant]
  11. CLEXANE [Concomitant]
  12. VIGANTOLETTEN [Concomitant]
  13. MARCUMAR [Concomitant]
  14. AUGMENTIN [Concomitant]
  15. IBANDRONATE [Concomitant]

REACTIONS (7)
  - Pneumonia [Unknown]
  - Spinal column stenosis [Not Recovered/Not Resolved]
  - Aortic valve disease mixed [Unknown]
  - Hepatomegaly [Unknown]
  - Cholelithiasis [Unknown]
  - Renal cyst [Unknown]
  - Aortic arteriosclerosis [Unknown]
